FAERS Safety Report 15729429 (Version 2)
Quarter: 2019Q1

REPORT INFORMATION
  Report Type: Spontaneous
  Country: US (occurrence: US)
  Receive Date: 20181217
  Receipt Date: 20190111
  Transmission Date: 20190417
  Serious: No
  Sender: FDA-Public Use
  Company Number: US-ASTRAZENECA-2018SF59127

PATIENT
  Age: 744 Month
  Sex: Male
  Weight: 70.3 kg

DRUGS (2)
  1. BYDUREON BCISE [Suspect]
     Active Substance: EXENATIDE
     Indication: TYPE 2 DIABETES MELLITUS
     Route: 058
     Dates: start: 201809
  2. INSULIN [Concomitant]
     Active Substance: INSULIN NOS
     Indication: TYPE 2 DIABETES MELLITUS
     Dosage: THREE TIMES A DAY
     Route: 048
     Dates: start: 201809

REACTIONS (5)
  - Device issue [Unknown]
  - Device leakage [Unknown]
  - Incorrect dose administered [Not Recovered/Not Resolved]
  - Device malfunction [Unknown]
  - Injection site mass [Not Recovered/Not Resolved]

NARRATIVE: CASE EVENT DATE: 201809
